FAERS Safety Report 18015733 (Version 1)
Quarter: 2020Q3

REPORT INFORMATION
  Report Type: Spontaneous
  Country: US (occurrence: US)
  Receive Date: 20200713
  Receipt Date: 20200713
  Transmission Date: 20201103
  Serious: Yes (Other)
  Sender: FDA-Public Use
  Company Number: US-PFIZER INC-2020266370

PATIENT
  Sex: Female

DRUGS (1)
  1. DILANTIN [Suspect]
     Active Substance: PHENYTOIN
     Dosage: UNK
     Route: 048
     Dates: start: 2014, end: 2019

REACTIONS (4)
  - Balance disorder [Unknown]
  - Cerebellar atrophy [Not Recovered/Not Resolved]
  - Ataxia [Unknown]
  - Gait disturbance [Unknown]
